FAERS Safety Report 13385170 (Version 1)
Quarter: 2017Q1

REPORT INFORMATION
  Report Type: Other
  Country: GB (occurrence: US)
  Receive Date: 20170329
  Receipt Date: 20170329
  Transmission Date: 20170429
  Serious: Yes (Hospitalization, Other)
  Sender: FDA-Public Use
  Company Number: US-INTERNATIONAL MEDICATION SYSTEMS, LIMITED-1064805

PATIENT
  Age: 30 Year
  Sex: Female

DRUGS (5)
  1. EPINEPHRINE. [Suspect]
     Active Substance: EPINEPHRINE
     Indication: EPIDURAL ANALGESIA
     Route: 008
  2. FENTANYL 1.25 MCG/ML [Suspect]
     Active Substance: FENTANYL
     Route: 008
  3. FENTANYL 50 MCG/ML [Suspect]
     Active Substance: FENTANYL
  4. LIDOCAINE 1 % [Suspect]
     Active Substance: LIDOCAINE
  5. BUPIVICAINE 0.044% [Suspect]
     Active Substance: BUPIVACAINE
     Route: 008

REACTIONS (7)
  - Spinal anaesthesia [Unknown]
  - Dyspnoea [Unknown]
  - Maternal exposure during pregnancy [Unknown]
  - Hypotension [Recovered/Resolved]
  - Nausea [Unknown]
  - Muscular weakness [Unknown]
  - Mental status changes [Unknown]
